FAERS Safety Report 8237598-1 (Version None)
Quarter: 2012Q1

REPORT INFORMATION
  Report Type: 
  Country: None (occurrence: None)
  Receive Date: 20120323
  Receipt Date: 20120309
  Transmission Date: 20120608
  Serious: Yes (Hospitalization, Other)
  Sender: FDA-Public Use
  Company Number: 2012AP000687

PATIENT
  Age: 52 Year
  Sex: Female

DRUGS (21)
  1. DIAZEPAM [Suspect]
     Indication: PRODUCT USED FOR UNKNOWN INDICATION
     Dosage: 5 MG, PRN
  2. LEVOTHYROXINE SODIUM [Suspect]
     Indication: PRODUCT USED FOR UNKNOWN INDICATION
     Dosage: 100 MG, QD
  3. PREMARIN [Suspect]
     Indication: MENOPAUSE
     Dosage: 0.625 MG
  4. CELECOXIB [Suspect]
     Indication: SOMATOFORM DISORDER
     Dosage: 200 MG, PRN
  5. ATORVASTATIN [Suspect]
     Indication: BLOOD CHOLESTEROL INCREASED
  6. VALACYCLOVIR [Suspect]
     Indication: HERPES ZOSTER
  7. CITALOPRAM HYDROBROMIDE [Suspect]
     Indication: PRODUCT USED FOR UNKNOWN INDICATION
     Dosage: 60 MG, QD
  8. PAROXETINE HCL [Suspect]
     Indication: STRESS
     Dosage: 60 MG, QD
  9. FLUOXETINE [Suspect]
     Indication: PRODUCT USED FOR UNKNOWN INDICATION
     Dosage: UNKNOWN
  10. PENICILLIN (BENZYLPENICILLIN) [Suspect]
     Indication: PRODUCT USED FOR UNKNOWN INDICATION
     Dosage: UNKNOWN
  11. LOVASTATIN [Suspect]
     Indication: PRODUCT USED FOR UNKNOWN INDICATION
     Dosage: UNKNOWN
  12. PRAVASTATIN [Suspect]
     Indication: PRODUCT USED FOR UNKNOWN INDICATION
     Dosage: 40 MG
  13. CEPHALEXIN [Suspect]
     Indication: PRODUCT USED FOR UNKNOWN INDICATION
  14. IRBESARTAN [Suspect]
     Indication: HYPERTENSION
     Dosage: 300 MG, QD
  15. TRAMADOL HCL [Suspect]
     Dosage: PRN
  16. SIMVASTATIN [Suspect]
     Indication: PRODUCT USED FOR UNKNOWN INDICATION
     Dosage: UNKNOWN
  17. METOCLOPRAMIDE [Suspect]
     Indication: PRODUCT USED FOR UNKNOWN INDICATION
  18. TENORMIN [Suspect]
     Indication: PRODUCT USED FOR UNKNOWN INDICATION
     Dosage: 12.5 MG, QD
  19. SERETIDE (SERETIDE) [Suspect]
     Indication: PRODUCT USED FOR UNKNOWN INDICATION
     Dosage: UNKNOWN
  20. ERYTHROMYCIN [Suspect]
     Indication: PRODUCT USED FOR UNKNOWN INDICATION
     Dosage: UNKNOWN
  21. VENLAFAXINE [Suspect]
     Indication: PRODUCT USED FOR UNKNOWN INDICATION
     Dosage: 300 MG, QD

REACTIONS (17)
  - DISCOMFORT [None]
  - DRUG INTERACTION [None]
  - RESTLESSNESS [None]
  - ANXIETY [None]
  - SUICIDE ATTEMPT [None]
  - AGGRESSION [None]
  - DRUG DOSE OMISSION [None]
  - GILBERT'S SYNDROME [None]
  - DEPRESSION [None]
  - DELIRIUM [None]
  - VIOLENCE-RELATED SYMPTOM [None]
  - MOOD SWINGS [None]
  - PHYSICAL ASSAULT [None]
  - SUICIDAL BEHAVIOUR [None]
  - ANGER [None]
  - AKATHISIA [None]
  - SOMATOFORM DISORDER [None]
